FAERS Safety Report 6202779-5 (Version None)
Quarter: 2009Q2

REPORT INFORMATION
  Report Type: 
  Country: None (occurrence: None)
  Receive Date: 20090520
  Receipt Date: 20090512
  Transmission Date: 20091009
  Serious: Yes (Other)
  Sender: FDA-Public Use
  Company Number: 2009SP010093

PATIENT
  Age: 63 Year
  Sex: Male

DRUGS (2)
  1. RIBAVIRIN [Suspect]
     Indication: HEPATITIS C
     Dosage: 600 MG; QD;
  2. PEGASYS [Suspect]
     Indication: HEPATITIS C
     Dosage: 180 DF; QW;

REACTIONS (6)
  - AUTOIMMUNE HEPATITIS [None]
  - COMPLICATIONS OF TRANSPLANTED LIVER [None]
  - DIARRHOEA [None]
  - HYPERAEMIA [None]
  - INJECTION SITE REACTION [None]
  - SERUM FERRITIN INCREASED [None]
